FAERS Safety Report 10406015 (Version 1)
Quarter: 2014Q3

REPORT INFORMATION
  Report Type: Spontaneous
  Country: US (occurrence: None)
  Receive Date: 20140822
  Receipt Date: 20140822
  Transmission Date: 20150326
  Serious: No
  Sender: FDA-Public Use
  Company Number: None

PATIENT
  Sex: Female
  Weight: 48.44 kg

DRUGS (2)
  1. CLONIDINE ER [Suspect]
     Active Substance: CLONIDINE
     Indication: ATTENTION DEFICIT/HYPERACTIVITY DISORDER
     Dosage: 0.1 MG ONE TABLET EACH AM AND TWO AT BEDTIME
     Dates: start: 20140724, end: 20140818
  2. CLONIDINE. [Suspect]
     Active Substance: CLONIDINE
     Indication: ATTENTION DEFICIT/HYPERACTIVITY DISORDER
     Dosage: 0.1 MG ONE TABLET AT BEDTIME
     Dates: start: 20111027, end: 20120712

REACTIONS (5)
  - Therapeutic response changed [None]
  - Condition aggravated [None]
  - Product substitution issue [None]
  - No therapeutic response [None]
  - Attention deficit/hyperactivity disorder [None]
